FAERS Safety Report 4821549-3 (Version None)
Quarter: 2005Q4

REPORT INFORMATION
  Report Type: 
  Country: None (occurrence: None)
  Receive Date: 20051103
  Receipt Date: 20051013
  Transmission Date: 20060501
  Serious: Yes (Other)
  Sender: FDA-Public Use
  Company Number: USA0510111001

PATIENT
  Age: 30 Year
  Sex: Female

DRUGS (2)
  1. PROZAC [Suspect]
     Indication: DEPRESSION
  2. ZYPREXA [Suspect]

REACTIONS (8)
  - ABORTION SPONTANEOUS [None]
  - ANXIETY [None]
  - DEPRESSION [None]
  - DRUG EXPOSURE DURING PREGNANCY [None]
  - FEELING ABNORMAL [None]
  - MANIA [None]
  - PREGNANCY [None]
  - SYSTEMIC LUPUS ERYTHEMATOSUS [None]
